FAERS Safety Report 4952186-8 (Version None)
Quarter: 2006Q1

REPORT INFORMATION
  Report Type: 
  Country: None (occurrence: None)
  Receive Date: 20060323
  Receipt Date: 20060317
  Transmission Date: 20060701
  Serious: Yes (Hospitalization)
  Sender: FDA-Public Use
  Company Number: PHNU2006DE01358

PATIENT
  Age: 29 Year
  Sex: Male

DRUGS (5)
  1. ABILIFY [Concomitant]
     Route: 065
  2. TAVOR [Concomitant]
     Route: 065
  3. CLOZAPINE [Suspect]
     Dosage: UP TO 800 MG/DAY
     Route: 048
     Dates: start: 20050101
  4. CLOZAPINE [Suspect]
     Dosage: 200 MG/DAY
     Route: 048
     Dates: end: 20060314
  5. CLOZAPINE [Suspect]
     Dosage: UP TO 300 MG/DAY
     Route: 048
     Dates: start: 20060315

REACTIONS (3)
  - CONDITION AGGRAVATED [None]
  - ELECTROCARDIOGRAM ABNORMAL [None]
  - ELECTROCARDIOGRAM ST SEGMENT ELEVATION [None]
